FAERS Safety Report 10306269 (Version 1)
Quarter: 2014Q3

REPORT INFORMATION
  Report Type: Spontaneous
  Country: US (occurrence: US)
  Receive Date: 20140715
  Receipt Date: 20140715
  Transmission Date: 20150326
  Serious: No
  Sender: FDA-Public Use
  Company Number: US-TEVA-494889USA

PATIENT
  Sex: Female

DRUGS (1)
  1. PLAN B ONE-STEP [Suspect]
     Active Substance: LEVONORGESTREL
     Indication: POST COITAL CONTRACEPTION
     Dosage: 1.5 MILLIGRAM DAILY;
     Route: 048
     Dates: start: 20140608, end: 20140608

REACTIONS (6)
  - Pruritus [Unknown]
  - Menstruation irregular [Unknown]
  - Nausea [Unknown]
  - Smoke sensitivity [Unknown]
  - Breast enlargement [Unknown]
  - Decreased appetite [Unknown]
